FAERS Safety Report 14401621 (Version 3)
Quarter: 2018Q1

REPORT INFORMATION
  Report Type: Report from Study
  Country: IL (occurrence: IL)
  Receive Date: 20180117
  Receipt Date: 20180305
  Transmission Date: 20180509
  Serious: Yes (Death, Hospitalization)
  Sender: FDA-Public Use
  Company Number: IL-ACTELION-A-CH2018-165572

PATIENT
  Age: 60 Year
  Sex: Male

DRUGS (7)
  1. REVATIO [Concomitant]
     Active Substance: SILDENAFIL CITRATE
  2. URSOLIT [Concomitant]
  3. UPTRAVI [Suspect]
     Active Substance: SELEXIPAG
     Dosage: UNK
     Route: 048
     Dates: start: 20170501
  4. LOSEC [Concomitant]
     Active Substance: OMEPRAZOLE
  5. MIRO [Concomitant]
  6. UPTRAVI [Suspect]
     Active Substance: SELEXIPAG
     Indication: PULMONARY ARTERIAL HYPERTENSION
     Dosage: 1600 ?G, BID
     Route: 048
     Dates: start: 20170501, end: 20180221
  7. FUSID [Concomitant]
     Active Substance: FUROSEMIDE

REACTIONS (7)
  - Hepatic neoplasm [Fatal]
  - Diarrhoea [Fatal]
  - Hepatic cyst [Not Recovered/Not Resolved]
  - Concomitant disease aggravated [Fatal]
  - General physical health deterioration [Not Recovered/Not Resolved]
  - Cyst drainage [Unknown]
  - Weight decreased [Not Recovered/Not Resolved]
